FAERS Safety Report 7246927-7 (Version None)
Quarter: 2011Q1

REPORT INFORMATION
  Report Type: 
  Country: None (occurrence: None)
  Receive Date: 20110127
  Receipt Date: 20110124
  Transmission Date: 20110831
  Serious: Yes (Death)
  Sender: FDA-Public Use
  Company Number: TN-SANOFI-AVENTIS-2011SA004583

PATIENT
  Age: 66 Year
  Sex: Male

DRUGS (7)
  1. PLAVIX [Suspect]
     Indication: STENT PLACEMENT
     Route: 048
     Dates: start: 20100224, end: 20101020
  2. CAPTOPRIL [Concomitant]
     Route: 048
     Dates: end: 20101020
  3. PLAVIX [Suspect]
     Indication: MYOCARDIAL INFARCTION
     Route: 048
     Dates: start: 20100224, end: 20101020
  4. CRESTOR [Concomitant]
     Route: 048
     Dates: end: 20101020
  5. HYPOTEN [Concomitant]
     Route: 048
     Dates: end: 20101020
  6. LASIX [Concomitant]
     Route: 048
     Dates: end: 20101020
  7. GLUCOPHAGE [Concomitant]
     Route: 048
     Dates: end: 20101020

REACTIONS (1)
  - LUNG NEOPLASM MALIGNANT [None]
